FAERS Safety Report 13450931 (Version 2)
Quarter: 2017Q2

REPORT INFORMATION
  Report Type: Spontaneous
  Country: GB (occurrence: GB)
  Receive Date: 20170418
  Receipt Date: 20170420
  Transmission Date: 20170830
  Serious: Yes (Life-Threatening)
  Sender: FDA-Public Use
  Company Number: GB-ASTRAZENECA-2017SE39389

PATIENT
  Sex: Male

DRUGS (8)
  1. CANDESARTAN. [Concomitant]
     Active Substance: CANDESARTAN
  2. TAMSULOSIN [Concomitant]
     Active Substance: TAMSULOSIN
  3. EKLIRA GENUAIR [Suspect]
     Active Substance: ACLIDINIUM BROMIDE
     Indication: CHRONIC OBSTRUCTIVE PULMONARY DISEASE
     Dosage: 322 UG, TWICE A DAY
     Route: 055
     Dates: start: 2014
  4. BISOPROLOL [Concomitant]
     Active Substance: BISOPROLOL
  5. AZITHROMYCIN ANHYDROUS. [Concomitant]
     Active Substance: AZITHROMYCIN ANHYDROUS
  6. WARFARIN [Concomitant]
     Active Substance: WARFARIN
  7. CARBOCYSTEINE [Concomitant]
     Active Substance: CARBOCYSTEINE
  8. DIGOXIN. [Concomitant]
     Active Substance: DIGOXIN

REACTIONS (4)
  - Dyspnoea [Unknown]
  - Adverse event [Unknown]
  - Drug dose omission [Unknown]
  - Device issue [Unknown]
